FAERS Safety Report 16814303 (Version 1)
Quarter: 2019Q3

REPORT INFORMATION
  Report Type: Spontaneous
  Country: US (occurrence: US)
  Receive Date: 20190917
  Receipt Date: 20190917
  Transmission Date: 20191005
  Serious: No
  Sender: FDA-Public Use
  Company Number: US-ALLERGAN-1927095US

PATIENT
  Sex: Female
  Weight: 76.2 kg

DRUGS (2)
  1. SUCRALFATE UNK [Suspect]
     Active Substance: SUCRALFATE
     Indication: ABDOMINAL DISCOMFORT
     Dosage: UNK
  2. ZYVOX [Concomitant]
     Active Substance: LINEZOLID
     Indication: PRODUCT USED FOR UNKNOWN INDICATION
     Dosage: 600 MG, BID
     Route: 048

REACTIONS (2)
  - Nausea [Unknown]
  - Vomiting [Unknown]
